FAERS Safety Report 9351541 (Version 1)
Quarter: 2013Q2

REPORT INFORMATION
  Report Type: Spontaneous
  Country: US (occurrence: US)
  Receive Date: 20130617
  Receipt Date: 20130617
  Transmission Date: 20140414
  Serious: No
  Sender: FDA-Public Use
  Company Number: US-009507513-1305USA017919

PATIENT
  Age: 52 Year
  Sex: Male

DRUGS (4)
  1. ISENTRESS [Suspect]
     Indication: HIV INFECTION
     Dosage: ONE ISENTRESS 400 MG TABLET CRUSHED BID
     Route: 048
     Dates: start: 20130418
  2. TRUVADA [Concomitant]
  3. BUPROPION HYDROCHLORIDE [Concomitant]
  4. PIOGLITAZONE HYDROCHLORIDE [Concomitant]

REACTIONS (3)
  - Viral load increased [Not Recovered/Not Resolved]
  - Vomiting [Not Recovered/Not Resolved]
  - Wrong technique in drug usage process [Unknown]
